FAERS Safety Report 9672120 (Version 2)
Quarter: 2013Q4

REPORT INFORMATION
  Report Type: Spontaneous
  Country: US (occurrence: US)
  Receive Date: 20131106
  Receipt Date: 20131114
  Transmission Date: 20140711
  Serious: Yes (Hospitalization)
  Sender: FDA-Public Use
  Company Number: US-JNJFOC-20131100303

PATIENT
  Age: 56 Year
  Sex: Male
  Weight: 166.02 kg

DRUGS (4)
  1. INVOKANA [Suspect]
     Indication: TYPE 2 DIABETES MELLITUS
     Route: 048
     Dates: start: 20130930, end: 20131026
  2. GLYBURIDE [Concomitant]
     Indication: DIABETES MELLITUS
     Route: 048
  3. VYTORIN [Concomitant]
     Indication: BLOOD CHOLESTEROL
     Route: 048
  4. LISINOPRIL [Concomitant]
     Indication: BLOOD PRESSURE
     Route: 048

REACTIONS (3)
  - Abscess limb [Not Recovered/Not Resolved]
  - Purulence [Recovered/Resolved]
  - Abscess [Not Recovered/Not Resolved]
